FAERS Safety Report 9041903 (Version 1)
Quarter: 2013Q1

REPORT INFORMATION
  Report Type: Report from Study
  Country: US (occurrence: US)
  Receive Date: 20130129
  Receipt Date: 20130129
  Transmission Date: 20140127
  Serious: No
  Sender: FDA-Public Use
  Company Number: US-ABBOTT-12P-163-0903903-00

PATIENT
  Age: 65 Year
  Sex: Female

DRUGS (13)
  1. HUMIRA 40 MG/0.8 ML PEN [Suspect]
     Indication: CROHN^S DISEASE
     Dates: start: 20111207
  2. ENTOCORT [Concomitant]
     Indication: CROHN^S DISEASE
  3. TENORMIN [Concomitant]
     Indication: BLOOD PRESSURE
     Dosage: 5MG QHS
  4. NEURONTIN [Concomitant]
     Indication: MIGRAINE
  5. PRILOSEC [Concomitant]
     Indication: GASTROOESOPHAGEAL REFLUX DISEASE
  6. CARAFATE [Concomitant]
     Indication: GASTROOESOPHAGEAL REFLUX DISEASE
  7. OMEGA 3 [Concomitant]
     Indication: SUPPLEMENTATION THERAPY
  8. VITAMIN C [Concomitant]
     Indication: VITAMIN SUPPLEMENTATION
  9. MULTIVITAMIN [Concomitant]
     Indication: PRODUCT USED FOR UNKNOWN INDICATION
  10. VITAMIN E [Concomitant]
     Indication: PRODUCT USED FOR UNKNOWN INDICATION
  11. CALCIUM D3 [Concomitant]
     Indication: MINERAL SUPPLEMENTATION
     Dosage: 600 MG TWO DAILY
  12. BABY ASA [Concomitant]
     Indication: PROPHYLAXIS
  13. CRANBERRY [Concomitant]
     Indication: PROPHYLAXIS

REACTIONS (3)
  - Drug ineffective [Not Recovered/Not Resolved]
  - Tremor [Not Recovered/Not Resolved]
  - Paraesthesia [Not Recovered/Not Resolved]
